FAERS Safety Report 12246663 (Version 1)
Quarter: 2016Q2

REPORT INFORMATION
  Report Type: Spontaneous
  Country: US (occurrence: US)
  Receive Date: 20160407
  Receipt Date: 20160407
  Transmission Date: 20160815
  Serious: Yes (Hospitalization, Other)
  Sender: FDA-Public Use
  Company Number: US-AMGEN-USASP2016040509

PATIENT
  Age: 96 Year
  Sex: Female

DRUGS (3)
  1. SENSIPAR [Suspect]
     Active Substance: CINACALCET HYDROCHLORIDE
     Dosage: 22.5 MG, Q12H
     Route: 048
  2. SENSIPAR [Suspect]
     Active Substance: CINACALCET HYDROCHLORIDE
     Indication: HYPERCALCAEMIA
     Dosage: 30 MG, QD
     Route: 048
     Dates: start: 2013
  3. SENSIPAR [Suspect]
     Active Substance: CINACALCET HYDROCHLORIDE
     Indication: HYPERPARATHYROIDISM PRIMARY
     Dosage: 7.5 MG, Q12H
     Route: 048

REACTIONS (8)
  - Gait disturbance [Unknown]
  - Fall [Unknown]
  - Muscle atrophy [Unknown]
  - Decubitus ulcer [Recovered/Resolved]
  - Impaired healing [Unknown]
  - Urinary tract infection [Unknown]
  - Wrong technique in product usage process [Unknown]
  - Generalised tonic-clonic seizure [Recovered/Resolved]
